FAERS Safety Report 9108750 (Version 2)
Quarter: 2013Q1

REPORT INFORMATION
  Report Type: Spontaneous
  Country: US (occurrence: US)
  Receive Date: 20130222
  Receipt Date: 20130301
  Transmission Date: 20140127
  Serious: Yes (Hospitalization, Other)
  Sender: FDA-Public Use
  Company Number: US-BAXTER-2013BAX006088

PATIENT
  Age: 48 Year
  Sex: Female

DRUGS (5)
  1. DIANEAL LOW CALCIUM [Suspect]
     Indication: PERITONEAL DIALYSIS
     Route: 033
  2. VICODIN [Suspect]
     Indication: BACK PAIN
     Dosage: LOWEST DOSE
     Route: 048
  3. VICODIN [Suspect]
     Route: 048
  4. MYCOPHENOLATE [Suspect]
     Indication: TRANSPLANT FAILURE
     Route: 065
  5. CYCLOSPORIN [Suspect]
     Indication: TRANSPLANT FAILURE
     Route: 065

REACTIONS (6)
  - Herpes zoster [Not Recovered/Not Resolved]
  - Confusional state [Recovered/Resolved]
  - Peritonitis [Recovered/Resolved]
  - Cough [Unknown]
  - Nasopharyngitis [Unknown]
  - Immune system disorder [Unknown]
